FAERS Safety Report 7211047-4 (Version None)
Quarter: 2010Q4

REPORT INFORMATION
  Report Type: 
  Country: None (occurrence: None)
  Receive Date: 20101223
  Receipt Date: 20101209
  Transmission Date: 20110411
  Serious: Yes (Hospitalization)
  Sender: FDA-Public Use
  Company Number: 2010S1000904

PATIENT
  Age: 62 Year
  Sex: Female
  Weight: 44.2 kg

DRUGS (7)
  1. SK-0403 (SK-0403) [Suspect]
     Indication: TYPE 2 DIABETES MELLITUS
     Dosage: 100 MG;BID;PO  ;100 MG;BID;PO
     Route: 048
     Dates: start: 20091112, end: 20100208
  2. SK-0403 (SK-0403) [Suspect]
     Indication: TYPE 2 DIABETES MELLITUS
     Dosage: 100 MG;BID;PO  ;100 MG;BID;PO
     Route: 048
     Dates: start: 20100208, end: 20101029
  3. LIVALO KOWA [Concomitant]
  4. GLUCOBAY [Concomitant]
  5. OLMETEC [Concomitant]
  6. FERROMIA /00023520/ [Concomitant]
  7. MUCOSTA [Concomitant]

REACTIONS (1)
  - GASTRIC CANCER [None]
